FAERS Safety Report 4627576-3 (Version None)
Quarter: 2005Q2

REPORT INFORMATION
  Report Type: 
  Country: None (occurrence: None)
  Receive Date: 20050405
  Receipt Date: 20050324
  Transmission Date: 20051028
  Serious: Yes (Other)
  Sender: FDA-Public Use
  Company Number: TPA2005A00207

PATIENT
  Age: 68 Year
  Sex: Female
  Weight: 63.05 kg

DRUGS (9)
  1. ACTOS [Suspect]
     Indication: DIABETES MELLITUS NON-INSULIN-DEPENDENT
     Dosage: 15 MG, 1 IN 1 D, PER ORAL
     Route: 048
     Dates: start: 20041216, end: 20050212
  2. ZOCOR [Concomitant]
  3. LASIX [Concomitant]
  4. TOPROL-XL [Concomitant]
  5. HYDROCHLOROTHIAZIDE [Concomitant]
  6. DIGOXIN [Concomitant]
  7. COZAAR [Concomitant]
  8. NITROGLYCERIN [Concomitant]
  9. ASPIRIN [Concomitant]

REACTIONS (2)
  - HYPERSENSITIVITY [None]
  - LYMPHADENOPATHY [None]
